FAERS Safety Report 8387607-4 (Version None)
Quarter: 2012Q2

REPORT INFORMATION
  Report Type: 
  Country: None (occurrence: None)
  Receive Date: 20120525
  Receipt Date: 20120523
  Transmission Date: 20120825
  Serious: Yes (Death, Hospitalization)
  Sender: FDA-Public Use
  Company Number: PHHY2012FR018352

PATIENT
  Sex: Female
  Weight: 55 kg

DRUGS (1)
  1. EVEROLIMUS [Suspect]
     Indication: METASTATIC RENAL CELL CARCINOMA
     Dosage: 5 MG, DAILY
     Dates: start: 20101201, end: 20110328

REACTIONS (6)
  - PYREXIA [None]
  - NEOPLASM MALIGNANT [None]
  - COUGH [None]
  - LUNG DISORDER [None]
  - PNEUMONIA [None]
  - NEOPLASM PROGRESSION [None]
